FAERS Safety Report 25335563 (Version 3)
Quarter: 2025Q3

REPORT INFORMATION
  Report Type: Spontaneous
  Country: JP (occurrence: JP)
  Receive Date: 20250520
  Receipt Date: 20250722
  Transmission Date: 20251021
  Serious: Yes (Hospitalization)
  Sender: ROCHE
  Company Number: JP-CHUGAI-2025015543

PATIENT
  Age: 6 Year
  Sex: Male

DRUGS (1)
  1. EVRYSDI [Suspect]
     Active Substance: RISDIPLAM
     Indication: Spinal muscular atrophy
     Dosage: 3.3 MILLILITER, QD, ADMINISTRATION ROUTE: TUBAL ADMINISTRATION
     Route: 050
     Dates: start: 20250107

REACTIONS (2)
  - Nasopharyngitis [Unknown]
  - Atelectasis [Not Recovered/Not Resolved]

NARRATIVE: CASE EVENT DATE: 20250513
